FAERS Safety Report 14094593 (Version 2)
Quarter: 2021Q4

REPORT INFORMATION
  Report Type: Spontaneous
  Country: US (occurrence: US)
  Receive Date: 20171016
  Receipt Date: 20211011
  Transmission Date: 20220303
  Serious: No
  Sender: FDA-Public Use
  Company Number: US-AMGEN-USASP2017045476

PATIENT
  Age: 67 Year
  Sex: Female

DRUGS (2)
  1. PROLIA [Suspect]
     Active Substance: DENOSUMAB
     Indication: Osteoporosis postmenopausal
     Dosage: 60 MILLIGRAM, Q6MO
     Route: 065
     Dates: start: 20170317
  2. PROLIA [Suspect]
     Active Substance: DENOSUMAB
     Indication: Osteoporosis

REACTIONS (3)
  - Pain in jaw [Not Recovered/Not Resolved]
  - Dental care [Unknown]
  - Mammogram [Unknown]

NARRATIVE: CASE EVENT DATE: 20170301
